FAERS Safety Report 6593750-2 (Version None)
Quarter: 2010Q1

REPORT INFORMATION
  Report Type: 
  Country: None (occurrence: None)
  Receive Date: 20100218
  Receipt Date: 20100218
  Transmission Date: 20100710
  Serious: Yes (Other)
  Sender: FDA-Public Use
  Company Number: None

PATIENT
  Age: 61 Year
  Sex: Female
  Weight: 58.9676 kg

DRUGS (1)
  1. PROPOXYPHENE HCL AND ACETAMINOPHEN [Suspect]
     Indication: PAIN
     Dosage: 1 TO TABLETS 4 TIMES A DAY MOUTH
     Route: 048
     Dates: start: 20100126, end: 20100129

REACTIONS (4)
  - DISCOMFORT [None]
  - DRUG INEFFECTIVE [None]
  - IMPAIRED HEALING [None]
  - INSOMNIA [None]
